FAERS Safety Report 13447971 (Version 2)
Quarter: 2017Q2

REPORT INFORMATION
  Report Type: Spontaneous
  Country: JP (occurrence: JP)
  Receive Date: 20170417
  Receipt Date: 20170420
  Transmission Date: 20170830
  Serious: Yes (Life-Threatening, Other)
  Sender: FDA-Public Use
  Company Number: JP-PFIZER INC-2017161458

PATIENT
  Age: 71 Year
  Sex: Female

DRUGS (6)
  1. VINCRISTINE [Suspect]
     Active Substance: VINCRISTINE
     Indication: T-CELL LYMPHOMA
     Dosage: 80% DOSE, CYCLIC
  2. CYCLOPHOSPHAMIDE. [Suspect]
     Active Substance: CYCLOPHOSPHAMIDE
     Indication: T-CELL LYMPHOMA
     Dosage: 80% DOSE, CYCLIC
  3. PREDNISOLONE. [Suspect]
     Active Substance: PREDNISOLONE
     Indication: T-CELL LYMPHOMA
     Dosage: 80% DOSE, CYCLIC
  4. LEVOTHYROXINE. [Concomitant]
     Active Substance: LEVOTHYROXINE
     Indication: GOITRE
     Dosage: UNK
     Route: 048
  5. LEVOTHYROXINE. [Concomitant]
     Active Substance: LEVOTHYROXINE
     Indication: BLOOD THYROID STIMULATING HORMONE INCREASED
     Dosage: 100 UG, DAILY
     Route: 048
  6. DOXORUBICIN HCL [Suspect]
     Active Substance: DOXORUBICIN HYDROCHLORIDE
     Indication: T-CELL LYMPHOMA
     Dosage: 80% DOSE, CYCLIC

REACTIONS (1)
  - Neutropenia [Unknown]
